FAERS Safety Report 7627068-3 (Version None)
Quarter: 2011Q3

REPORT INFORMATION
  Report Type: 
  Country: None (occurrence: None)
  Receive Date: 20110714
  Receipt Date: 20110705
  Transmission Date: 20111222
  Serious: Yes (Hospitalization)
  Sender: FDA-Public Use
  Company Number: 1000020845

PATIENT
  Age: 22 Year
  Sex: Female
  Weight: 87 kg

DRUGS (1)
  1. FOSFOMYCIN (FOSFOMYCIN TROMETAMOL) (GRANULATE) [Suspect]
     Indication: CYSTITIS
     Dosage: 3 GRAM (3 GM,1 IN 1 D), ORAL
     Route: 048
     Dates: start: 20110319, end: 20110319

REACTIONS (1)
  - PSEUDOMEMBRANOUS COLITIS [None]
